FAERS Safety Report 24310436 (Version 1)
Quarter: 2024Q3

REPORT INFORMATION
  Report Type: Spontaneous
  Country: US (occurrence: US)
  Receive Date: 20240912
  Receipt Date: 20240912
  Transmission Date: 20241017
  Serious: Yes (Other)
  Sender: ROCHE
  Company Number: US-ROCHE-10000075391

PATIENT
  Sex: Female

DRUGS (2)
  1. VABYSMO [Suspect]
     Active Substance: FARICIMAB\FARICIMAB-SVOA
     Indication: Product used for unknown indication
     Route: 065
     Dates: start: 20240312, end: 20240515
  2. EYLEA [Concomitant]
     Active Substance: AFLIBERCEPT
     Dates: start: 20240710

REACTIONS (1)
  - Endophthalmitis [Unknown]
